FAERS Safety Report 8904204 (Version 1)
Quarter: 2012Q4

REPORT INFORMATION
  Report Type: 
  Country: US (occurrence: US)
  Receive Date: 20121112
  Receipt Date: 20121112
  Transmission Date: 20130627
  Serious: Yes (Hospitalization)
  Sender: FDA-Public Use
  Company Number: US-ACTELION-A-US2012-73905

PATIENT
  Age: 66 Year
  Sex: Female

DRUGS (4)
  1. VELETRI [Suspect]
     Indication: PULMONARY ARTERIAL HYPERTENSION
     Dosage: 24 ng/kg, per min
     Route: 042
     Dates: start: 20110901
  2. TRACLEER [Concomitant]
     Indication: PULMONARY ARTERIAL HYPERTENSION
     Dosage: UNK
     Route: 048
  3. COUMADIN [Concomitant]
  4. SILDENAFIL [Concomitant]

REACTIONS (2)
  - Cardiac disorder [Not Recovered/Not Resolved]
  - Malaise [Unknown]
